FAERS Safety Report 15317428 (Version 5)
Quarter: 2019Q2

REPORT INFORMATION
  Report Type: Spontaneous
  Country: US (occurrence: US)
  Receive Date: 20180824
  Receipt Date: 20190527
  Transmission Date: 20190711
  Serious: Yes (Other)
  Sender: FDA-Public Use
  Company Number: US-ASTRAZENECA-2018SF05785

PATIENT
  Age: 25827 Day
  Sex: Female
  Weight: 113.4 kg

DRUGS (27)
  1. LEVOTHYROXINE. [Concomitant]
     Active Substance: LEVOTHYROXINE
  2. ZOFRAN [Concomitant]
     Active Substance: ONDANSETRON HYDROCHLORIDE
  3. NEXIUM [Suspect]
     Active Substance: ESOMEPRAZOLE MAGNESIUM
     Indication: GASTROOESOPHAGEAL REFLUX DISEASE
     Route: 048
     Dates: start: 2010, end: 2015
  4. AZITHROMYCIN ANHYDROUS. [Concomitant]
     Active Substance: AZITHROMYCIN ANHYDROUS
  5. AMARYL [Concomitant]
     Active Substance: GLIMEPIRIDE
  6. FUROSEMIDE. [Concomitant]
     Active Substance: FUROSEMIDE
  7. LEVAQUIN [Concomitant]
     Active Substance: LEVOFLOXACIN
  8. PREDNISONE. [Concomitant]
     Active Substance: PREDNISONE
  9. CALCITRIOL. [Concomitant]
     Active Substance: CALCITRIOL
  10. AMOXICILLIN. [Concomitant]
     Active Substance: AMOXICILLIN
  11. CYMBALTA [Concomitant]
     Active Substance: DULOXETINE HYDROCHLORIDE
  12. GABAPENTIN. [Concomitant]
     Active Substance: GABAPENTIN
  13. LIPITOR [Concomitant]
     Active Substance: ATORVASTATIN CALCIUM
  14. ALBUTEROL. [Concomitant]
     Active Substance: ALBUTEROL
  15. OMEPRAZOLE. [Suspect]
     Active Substance: OMEPRAZOLE
     Indication: GASTROOESOPHAGEAL REFLUX DISEASE
     Dosage: GENERIC
     Route: 065
     Dates: start: 2015, end: 2017
  16. AMLODIPINE [Concomitant]
     Active Substance: AMLODIPINE BESYLATE
  17. DILTIAZEM. [Concomitant]
     Active Substance: DILTIAZEM
  18. FLUTICASONE. [Concomitant]
     Active Substance: FLUTICASONE
  19. CINACALCET. [Concomitant]
     Active Substance: CINACALCET
  20. ROPINIROLE. [Concomitant]
     Active Substance: ROPINIROLE
  21. TRIAMCINOLONE [Concomitant]
     Active Substance: TRIAMCINOLONE
  22. ALLOPURINOL. [Concomitant]
     Active Substance: ALLOPURINOL
  23. ALPRAZOLAM. [Concomitant]
     Active Substance: ALPRAZOLAM
  24. AUGMENTIN [Concomitant]
     Active Substance: AMOXICILLIN\CLAVULANATE POTASSIUM
  25. ATIVAN [Concomitant]
     Active Substance: LORAZEPAM
  26. NEXIUM [Suspect]
     Active Substance: ESOMEPRAZOLE MAGNESIUM
     Indication: GASTROOESOPHAGEAL REFLUX DISEASE
     Route: 048
     Dates: start: 2010, end: 2018
  27. LISINOPRIL. [Concomitant]
     Active Substance: LISINOPRIL

REACTIONS (7)
  - Acute kidney injury [Unknown]
  - Nephrogenic anaemia [Unknown]
  - Renal failure [Unknown]
  - Hypoparathyroidism secondary [Unknown]
  - Chronic kidney disease-mineral and bone disorder [Unknown]
  - End stage renal disease [Unknown]
  - Chronic kidney disease [Not Recovered/Not Resolved]

NARRATIVE: CASE EVENT DATE: 20140219
